FAERS Safety Report 4265904-1 (Version None)
Quarter: 2004Q1

REPORT INFORMATION
  Report Type: 
  Country: None (occurrence: None)
  Receive Date: 20040106
  Receipt Date: 20031222
  Transmission Date: 20041129
  Serious: Yes (Hospitalization)
  Sender: FDA-Public Use
  Company Number: 187617

PATIENT
  Age: 43 Year
  Sex: Female
  Weight: 61 kg

DRUGS (3)
  1. AVONEX [Suspect]
     Indication: MULTIPLE SCLEROSIS
     Dosage: 30 MCG QW IM
     Route: 030
     Dates: start: 20021001
  2. SALOFALK    FALK [Concomitant]
  3. SULFASALAZINE [Concomitant]

REACTIONS (4)
  - ARTHRALGIA [None]
  - PYREXIA [None]
  - STEVENS-JOHNSON SYNDROME [None]
  - TONGUE DISORDER [None]
